FAERS Safety Report 20443639 (Version 13)
Quarter: 2024Q2

REPORT INFORMATION
  Report Type: Report from Study
  Country: DE (occurrence: DE)
  Receive Date: 20220208
  Receipt Date: 20240417
  Transmission Date: 20240716
  Serious: Yes (Hospitalization, Other)
  Sender: FDA-Public Use
  Company Number: DE-NOVARTISPH-NVSC2022DE026822

PATIENT
  Sex: Female
  Weight: 63 kg

DRUGS (11)
  1. KISQALI [Suspect]
     Active Substance: RIBOCICLIB
     Indication: Breast cancer metastatic
     Dosage: 600 MG, QD (SCHEMA 21 DAYS OF INTAKE, 7 DAYS PAUSE)
     Route: 048
     Dates: start: 20190105, end: 20190227
  2. KISQALI [Suspect]
     Active Substance: RIBOCICLIB
     Dosage: 400 MG, QD (SCHEMA 21 DAYS OF INTAKE, 7 DAYS PAUSE)
     Route: 048
     Dates: start: 20190228, end: 20190522
  3. KISQALI [Suspect]
     Active Substance: RIBOCICLIB
     Dosage: 200 MG, QD SCHEMA 21 DAYS OF INTAKE, 7 DAYS PAUSE)
     Route: 048
     Dates: start: 20190523, end: 20190911
  4. KISQALI [Suspect]
     Active Substance: RIBOCICLIB
     Dosage: 400 MG, QD (SCHEMA 21 DAYS OF INTAKE, 7 DAYS PAUSE)
     Route: 048
     Dates: start: 20190912, end: 20200519
  5. KISQALI [Suspect]
     Active Substance: RIBOCICLIB
     Dosage: 400 MG, QD (SCHEMA 21 DAYS OF INTAKE, 7 DAYS PAUSE)
     Route: 048
     Dates: start: 20200527, end: 20210331
  6. KISQALI [Suspect]
     Active Substance: RIBOCICLIB
     Dosage: 400 MG, QD (SCHEMA 21 DAYS OF INTAKE, 7 DAYS PAUSE)
     Route: 048
     Dates: start: 20210424, end: 20220213
  7. KISQALI [Suspect]
     Active Substance: RIBOCICLIB
     Dosage: 400 MG, QD (SCHEMA 21 DAYS OF INTAKE, 7 DAYS PAUSE)
     Route: 048
     Dates: start: 20220323, end: 20220607
  8. LETROZOLE [Suspect]
     Active Substance: LETROZOLE
     Indication: Breast cancer metastatic
     Dosage: 2.5 MG, QD
     Route: 048
     Dates: start: 20190105, end: 20220607
  9. ZOMETA [Suspect]
     Active Substance: ZOLEDRONIC ACID
     Indication: Breast cancer
     Dosage: 4 MG, Q4W (Q28D)
     Route: 042
     Dates: start: 20190117, end: 20210223
  10. ZOMETA [Suspect]
     Active Substance: ZOLEDRONIC ACID
     Indication: Metastases to bone
  11. AFINITOR [Concomitant]
     Active Substance: EVEROLIMUS
     Indication: Breast cancer metastatic
     Dosage: 5 MG, QD
     Route: 048
     Dates: start: 20220812

REACTIONS (3)
  - Osteonecrosis of jaw [Recovered/Resolved]
  - Mass [Unknown]
  - Osteonecrosis of jaw [Recovering/Resolving]

NARRATIVE: CASE EVENT DATE: 20210325
